FAERS Safety Report 17261391 (Version 1)
Quarter: 2020Q1

REPORT INFORMATION
  Report Type: Report from Study
  Country: EC (occurrence: EC)
  Receive Date: 20200113
  Receipt Date: 20200113
  Transmission Date: 20200409
  Serious: Yes (Hospitalization)
  Sender: FDA-Public Use
  Company Number: EC-EMD SERONO-9139127

PATIENT
  Sex: Female

DRUGS (1)
  1. REBIF [Suspect]
     Active Substance: INTERFERON BETA-1A
     Indication: MULTIPLE SCLEROSIS
     Dosage: 44 (UNSPECIFIED UNITS)
     Route: 058
     Dates: start: 20160428

REACTIONS (3)
  - Diplopia [Unknown]
  - Dizziness [Unknown]
  - Headache [Unknown]
